FAERS Safety Report 5100922-2 (Version None)
Quarter: 2006Q3

REPORT INFORMATION
  Report Type: 
  Country: None (occurrence: None)
  Receive Date: 20060911
  Receipt Date: 20040512
  Transmission Date: 20061208
  Serious: Yes (Hospitalization, Disabling)
  Sender: FDA-Public Use
  Company Number: US-BAYER-200417881BWH

PATIENT
  Age: 63 Year
  Sex: Male
  Weight: 91 kg

DRUGS (1)
  1. LEVITRA [Suspect]
     Indication: ERECTILE DYSFUNCTION

REACTIONS (1)
  - RETINAL DETACHMENT [None]
